FAERS Safety Report 12222400 (Version 1)
Quarter: 2016Q1

REPORT INFORMATION
  Report Type: Spontaneous
  Country: US (occurrence: US)
  Receive Date: 20160321
  Receipt Date: 20160321
  Transmission Date: 20160526
  Serious: Yes (Death, Hospitalization)
  Sender: FDA-Public Use
  Company Number: US-RELYPSA-RLY2016000165

PATIENT

DRUGS (12)
  1. PROTONIX                           /00661201/ [Concomitant]
     Active Substance: OMEPRAZOLE
  2. ASA (LOW DOSE) [Concomitant]
  3. OXYCODONE [Concomitant]
     Active Substance: OXYCODONE
  4. SODIUM POLYSTYRENE SULFONATE. [Concomitant]
     Active Substance: SODIUM POLYSTYRENE SULFONATE
  5. SELENIUM [Concomitant]
     Active Substance: SELENIUM
  6. DILTIAZEM [Concomitant]
     Active Substance: DILTIAZEM
  7. HYDROCORTISONE (CREAM) [Concomitant]
  8. VELTASSA [Suspect]
     Active Substance: PATIROMER
     Indication: HYPERKALAEMIA
  9. LORAZEPAM. [Concomitant]
     Active Substance: LORAZEPAM
  10. ZOFRAN [Concomitant]
     Active Substance: ONDANSETRON HYDROCHLORIDE
  11. CIPROFLOXACIN. [Concomitant]
     Active Substance: CIPROFLOXACIN
  12. CITALOPRAM [Concomitant]
     Active Substance: CITALOPRAM HYDROBROMIDE

REACTIONS (1)
  - Unresponsive to stimuli [Fatal]

NARRATIVE: CASE EVENT DATE: 20160308
